FAERS Safety Report 18121540 (Version 1)
Quarter: 2020Q3

REPORT INFORMATION
  Report Type: Spontaneous
  Country: US (occurrence: US)
  Receive Date: 20200806
  Receipt Date: 20200806
  Transmission Date: 20201103
  Serious: No
  Sender: FDA-Public Use
  Company Number: US-ASSERTIO THERAPEUTICS, INC.-US-2019DEP000957

PATIENT
  Age: 26 Year
  Sex: Female
  Weight: 97.51 kg

DRUGS (3)
  1. CAMBIA [Suspect]
     Active Substance: DICLOFENAC POTASSIUM
     Dosage: 50 MG, PRN
  2. CAMBIA [Suspect]
     Active Substance: DICLOFENAC POTASSIUM
     Dosage: 50 MG, PRN
     Dates: start: 20190826, end: 20190826
  3. CAMBIA [Suspect]
     Active Substance: DICLOFENAC POTASSIUM
     Indication: MIGRAINE
     Dosage: 50 MG, PRN
     Dates: start: 2017

REACTIONS (2)
  - Product colour issue [Unknown]
  - Product taste abnormal [Unknown]

NARRATIVE: CASE EVENT DATE: 20190826
